FAERS Safety Report 7414999-2 (Version None)
Quarter: 2011Q2

REPORT INFORMATION
  Report Type: 
  Country: None (occurrence: None)
  Receive Date: 20110414
  Receipt Date: 20110408
  Transmission Date: 20111010
  Serious: Yes (Death, Hospitalization, Other)
  Sender: FDA-Public Use
  Company Number: US-TEVA-274004USA

PATIENT
  Sex: Male
  Weight: 85.806 kg

DRUGS (17)
  1. CISPLATIN [Suspect]
     Indication: HEAD AND NECK CANCER
     Route: 042
     Dates: start: 20110317, end: 20110317
  2. ALBUTEROL SULFATE AUTOHALER [Concomitant]
  3. ROSUVASTATIN [Concomitant]
     Dosage: 50 MILLIGRAM;
     Route: 048
  4. INVESTIGATIONAL DRUG- BLINDED THERAPY [Suspect]
     Indication: HEAD AND NECK CANCER
     Route: 042
     Dates: start: 20110317, end: 20110317
  5. PARACETAMOL [Concomitant]
  6. CO-DIOVAN [Concomitant]
     Indication: PRODUCT USED FOR UNKNOWN INDICATION
     Dosage: 320/25 DAILY IN THE MORNING
     Dates: start: 19950101
  7. METOPROLOL TARTRATE [Concomitant]
     Indication: PRODUCT USED FOR UNKNOWN INDICATION
     Dosage: 50 MILLIGRAM; EVERY MORNING
     Dates: start: 19950101
  8. OMEPRAZOLE [Concomitant]
     Indication: PRODUCT USED FOR UNKNOWN INDICATION
     Dosage: 10 MILLIGRAM; ONCE EVERY MORNING
     Dates: start: 20030101
  9. ACETYLSALICYLIC ACID SRT [Concomitant]
     Indication: PRODUCT USED FOR UNKNOWN INDICATION
     Dosage: 81 MILLIGRAM;
  10. BISACODYL [Concomitant]
     Route: 054
  11. CHLORPROMAZINE [Concomitant]
     Indication: HICCUPS
     Dosage: 100 MILLIGRAM;
  12. FLUOROURACIL [Suspect]
     Indication: HEAD AND NECK CANCER
     Dosage: 2000 MG FOR 4 DAYS
     Route: 042
     Dates: start: 20110317, end: 20110321
  13. PRAVASTATIN [Concomitant]
     Indication: PRODUCT USED FOR UNKNOWN INDICATION
     Dosage: 20 MILLIGRAM; HS
     Dates: start: 19950101
  14. AMLODIPINE [Concomitant]
     Indication: PRODUCT USED FOR UNKNOWN INDICATION
     Dosage: 10 MILLIGRAM;
     Dates: start: 19950101
  15. B-KOMPLEX [Concomitant]
     Indication: PRODUCT USED FOR UNKNOWN INDICATION
     Dosage: 100 MILLIGRAM;
  16. CALCIUM ACETATE [Concomitant]
     Dosage: 2 TABLET;
     Route: 048
  17. MAGNESIUM HYDROXIDE [Concomitant]

REACTIONS (5)
  - SEPSIS [None]
  - TUMOUR LYSIS SYNDROME [None]
  - RENAL FAILURE ACUTE [None]
  - CARDIAC ARREST [None]
  - DEATH [None]
